FAERS Safety Report 8083986-6 (Version None)
Quarter: 2012Q1

REPORT INFORMATION
  Report Type: 
  Country: None (occurrence: None)
  Receive Date: 20120128
  Receipt Date: 20110117
  Transmission Date: 20120608
  Serious: No
  Sender: FDA-Public Use
  Company Number: US-ABBOTT-11P-163-0699195-00

PATIENT
  Sex: Male
  Weight: 67.192 kg

DRUGS (10)
  1. LEVOTHYROXINE SODIUM [Concomitant]
     Indication: HYPOTHYROIDISM
  2. FOLIC ACID [Concomitant]
     Indication: PRODUCT USED FOR UNKNOWN INDICATION
  3. VITAMIN B-12 [Concomitant]
     Indication: VITAMIN B12 DEFICIENCY
  4. HUMIRA [Suspect]
     Indication: RHEUMATOID ARTHRITIS
     Dates: start: 20090101, end: 20100501
  5. HUMIRA [Suspect]
     Dates: start: 20100601, end: 20101227
  6. METFFORMIN HYDROCHLORIDE [Concomitant]
     Indication: DIABETES MELLITUS
  7. LISINOPRIL [Concomitant]
     Indication: HYPERTENSION
     Dosage: 30 MG DAILY
  8. HUMULIN 70/30 [Concomitant]
     Indication: DIABETES MELLITUS
     Dosage: INSULIN
  9. METHOTREXATE [Concomitant]
     Indication: RHEUMATOID ARTHRITIS
  10. OXYCODONE HCL [Concomitant]
     Indication: PAIN
     Dosage: 5-500 AS REQUIRED

REACTIONS (3)
  - JOINT SWELLING [None]
  - DRUG INEFFECTIVE [None]
  - ARTHRALGIA [None]
